FAERS Safety Report 8492336-2 (Version None)
Quarter: 2012Q3

REPORT INFORMATION
  Report Type: 
  Country: None (occurrence: None)
  Receive Date: 20120706
  Receipt Date: 20120628
  Transmission Date: 20120928
  Serious: Yes (Other)
  Sender: FDA-Public Use
  Company Number: US-ROCHE-1012026

PATIENT
  Sex: Male
  Weight: 180 kg

DRUGS (2)
  1. ACCUTANE [Suspect]
     Dates: start: 19930101, end: 20060101
  2. ACCUTANE [Suspect]
     Indication: ACNE
     Dates: start: 19850101, end: 19860101

REACTIONS (3)
  - DEPRESSION [None]
  - INFLAMMATORY BOWEL DISEASE [None]
  - CROHN'S DISEASE [None]
